FAERS Safety Report 10098218 (Version 1)
Quarter: 2014Q2

REPORT INFORMATION
  Report Type: Spontaneous
  Country: US (occurrence: US)
  Receive Date: 20140423
  Receipt Date: 20140423
  Transmission Date: 20141212
  Serious: Yes (Hospitalization, Other)
  Sender: FDA-Public Use
  Company Number: US-BRISTOL-MYERS SQUIBB COMPANY-20206843

PATIENT
  Age: 55 Year
  Sex: Female

DRUGS (2)
  1. YERVOY [Suspect]
     Dosage: SECOND DOSE ON 02JAN2014
     Dates: start: 20131213
  2. INFLIXIMAB [Concomitant]
     Dosage: SECOND DOSE ON 27JAN2014
     Dates: start: 20140113

REACTIONS (2)
  - Colitis [Unknown]
  - Diarrhoea [Unknown]
